FAERS Safety Report 25045499 (Version 1)
Quarter: 2025Q1

REPORT INFORMATION
  Report Type: Spontaneous
  Country: US (occurrence: None)
  Receive Date: 20250306
  Receipt Date: 20250306
  Transmission Date: 20250408
  Serious: Yes (Hospitalization)
  Sender: FDA-CTU
  Company Number: None

PATIENT
  Age: 4 Year
  Sex: Male
  Weight: 13.4 kg

DRUGS (3)
  1. BLEOMYCIN [Suspect]
     Active Substance: BLEOMYCIN SULFATE
     Dates: end: 20241211
  2. CARBOPLATIN [Suspect]
     Active Substance: CARBOPLATIN
     Dates: end: 20241211
  3. ETOPOSIDE [Suspect]
     Active Substance: ETOPOSIDE
     Dates: end: 20241215

REACTIONS (3)
  - Febrile neutropenia [None]
  - Platelet count decreased [None]
  - Infusion site swelling [None]

NARRATIVE: CASE EVENT DATE: 20241222
